FAERS Safety Report 9889658 (Version 3)
Quarter: 2014Q1

REPORT INFORMATION
  Report Type: Spontaneous
  Country: JP (occurrence: JP)
  Receive Date: 20140211
  Receipt Date: 20140310
  Transmission Date: 20141002
  Serious: No
  Sender: FDA-Public Use
  Company Number: JP-PFIZER INC-2014037483

PATIENT
  Age: 63 Year
  Sex: Male

DRUGS (1)
  1. VFEND [Suspect]
     Dosage: 400 MG, DAILY
     Route: 048
     Dates: start: 20140121, end: 20140207

REACTIONS (2)
  - Blood creatine phosphokinase increased [Unknown]
  - Muscular weakness [Recovered/Resolved]
